FAERS Safety Report 8794141 (Version 1)
Quarter: 2012Q4

REPORT INFORMATION
  Report Type: 
  Country: GB (occurrence: GB)
  Receive Date: 20120917
  Receipt Date: 20120917
  Transmission Date: 20130627
  Serious: Yes (Other)
  Sender: FDA-Public Use
  Company Number: PHFR2012GB004963

PATIENT
  Sex: Male

DRUGS (1)
  1. CLOZARIL [Suspect]
     Indication: SCHIZOPHRENIA
     Dosage: 300 mg, in the evening
     Route: 048
     Dates: start: 20111021

REACTIONS (4)
  - Fall [Unknown]
  - Orthostatic hypotension [Unknown]
  - Mental disorder [Unknown]
  - Antipsychotic drug level below therapeutic [Unknown]
